FAERS Safety Report 11820303 (Version 1)
Quarter: 2015Q4

REPORT INFORMATION
  Report Type: Spontaneous
  Country: US (occurrence: US)
  Receive Date: 20151210
  Receipt Date: 20151210
  Transmission Date: 20160305
  Serious: No
  Sender: FDA-Public Use
  Company Number: US-009507513-1511USA013515

PATIENT
  Sex: Female

DRUGS (1)
  1. DULERA [Suspect]
     Active Substance: FORMOTEROL FUMARATE DIHYDRATE\MOMETASONE FUROATE
     Indication: BRONCHITIS
     Dosage: 1 INHALATION, 2 TIMES A DAY
     Route: 048

REACTIONS (5)
  - Underdose [Unknown]
  - Local swelling [Not Recovered/Not Resolved]
  - Odynophagia [Not Recovered/Not Resolved]
  - Oropharyngeal pain [Not Recovered/Not Resolved]
  - Product use issue [Unknown]
